FAERS Safety Report 4304538-7 (Version None)
Quarter: 2004Q1

REPORT INFORMATION
  Report Type: 
  Country: None (occurrence: None)
  Receive Date: 20040224
  Receipt Date: 20040212
  Transmission Date: 20041129
  Serious: Yes (Death)
  Sender: FDA-Public Use
  Company Number: 04P-028-0250329-00

PATIENT
  Age: 71 Year
  Sex: Female

DRUGS (1)
  1. ISOPTIN [Suspect]

REACTIONS (1)
  - THERAPEUTIC AGENT TOXICITY [None]
